FAERS Safety Report 8652960 (Version 7)
Quarter: 2013Q3

REPORT INFORMATION
  Report Type: Report from Study
  Country: US (occurrence: US)
  Receive Date: 20120706
  Receipt Date: 20130726
  Transmission Date: 20140515
  Serious: Yes (Hospitalization, Other)
  Sender: FDA-Public Use
  Company Number: US-ACTELION-A-US2008-19175

PATIENT
  Age: 58 Year
  Sex: Female

DRUGS (4)
  1. TRACLEER [Suspect]
     Indication: PULMONARY ARTERIAL HYPERTENSION
     Dosage: UNK
     Route: 048
  2. ADCIRCA [Concomitant]
  3. COUMADIN [Concomitant]
  4. TYVASO [Concomitant]

REACTIONS (9)
  - Gait disturbance [Unknown]
  - Dehydration [Unknown]
  - Back pain [Unknown]
  - Urinary tract infection [Unknown]
  - Atrial flutter [Recovered/Resolved]
  - Cardioversion [Recovered/Resolved]
  - Cardiac ablation [Recovered/Resolved]
  - Dyspnoea [Recovered/Resolved]
  - Back disorder [Unknown]
